FAERS Safety Report 19002727 (Version 1)
Quarter: 2021Q1

REPORT INFORMATION
  Report Type: Spontaneous
  Country: US (occurrence: US)
  Receive Date: 20210312
  Receipt Date: 20210312
  Transmission Date: 20210420
  Serious: No
  Sender: FDA-Public Use
  Company Number: None

PATIENT
  Sex: Male

DRUGS (8)
  1. DULCOLAX NOS [Concomitant]
     Active Substance: BISACODYL OR DOCUSATE SODIUM
  2. CALCIUM D [Concomitant]
     Active Substance: CALCIUM\VITAMIN D
  3. IRON [Concomitant]
     Active Substance: IRON
  4. ASPIRIN. [Concomitant]
     Active Substance: ASPIRIN
  5. MEMANTINE. [Concomitant]
     Active Substance: MEMANTINE
  6. VITAMIN C [Concomitant]
     Active Substance: ASCORBIC ACID
  7. MULTIVITAMIN [Concomitant]
     Active Substance: VITAMINS
  8. ENBREL [Suspect]
     Active Substance: ETANERCEPT
     Indication: RHEUMATOID ARTHRITIS
     Route: 058
     Dates: start: 20180118

REACTIONS (1)
  - Cerebrovascular accident [None]
